FAERS Safety Report 14311258 (Version 1)
Quarter: 2017Q4

REPORT INFORMATION
  Report Type: Spontaneous
  Country: ES (occurrence: ES)
  Receive Date: 20171221
  Receipt Date: 20171221
  Transmission Date: 20180321
  Serious: Yes (Hospitalization)
  Sender: FDA-Public Use
  Company Number: ES-STRIDES ARCOLAB LIMITED-2017SP014770

PATIENT

DRUGS (1)
  1. TACROLIMUS. [Suspect]
     Active Substance: TACROLIMUS
     Indication: RENAL TRANSPLANT
     Dosage: UNK
     Route: 065

REACTIONS (8)
  - Optic neuropathy [Unknown]
  - Papilloedema [Unknown]
  - Ocular hyperaemia [Unknown]
  - Blindness [Unknown]
  - Visual field defect [Unknown]
  - Optic disc haemorrhage [Unknown]
  - Vision blurred [Unknown]
  - Optic atrophy [Unknown]

NARRATIVE: CASE EVENT DATE: 2015
